FAERS Safety Report 14473908 (Version 1)
Quarter: 2018Q1

REPORT INFORMATION
  Report Type: Spontaneous
  Country: US (occurrence: US)
  Receive Date: 20180201
  Receipt Date: 20180201
  Transmission Date: 20180509
  Serious: No
  Sender: FDA-Public Use
  Company Number: US-BAYER-2018-019326

PATIENT
  Sex: Female
  Weight: 59 kg

DRUGS (3)
  1. VITAMIN D [Concomitant]
     Active Substance: CHOLECALCIFEROL
  2. MIRALAX [Suspect]
     Active Substance: POLYETHYLENE GLYCOL 3350
     Indication: GASTROINTESTINAL DISORDER
     Dosage: 1 DF, 2-4 DAYS IN A ROW
     Route: 048
  3. COQ10 [Concomitant]
     Active Substance: UBIDECARENONE

REACTIONS (1)
  - Flatulence [Unknown]
